FAERS Safety Report 6377971-X (Version None)
Quarter: 2009Q3

REPORT INFORMATION
  Report Type: 
  Country: None (occurrence: None)
  Receive Date: 20090925
  Receipt Date: 20090917
  Transmission Date: 20100115
  Serious: Yes (Hospitalization, Other)
  Sender: FDA-Public Use
  Company Number: PHHY2009BR39909

PATIENT
  Age: 76 Year
  Sex: Female
  Weight: 52 kg

DRUGS (5)
  1. GALVUS MET [Suspect]
     Indication: DIABETES MELLITUS
     Dosage: 1 TABLET IN THE MORNING
     Route: 048
  2. DIOVAN HCT [Suspect]
     Indication: CARDIOMYOPATHY
     Dosage: 1 DF, BID (MORNING AND NIGHT)
  3. GALVUS MET COMBIPACK [Suspect]
     Dosage: 1 TABLET OF EACH ACTIVE COMPOUND IN THE MORNING
  4. SOMALGIN [Concomitant]
     Indication: DIABETES MELLITUS
     Dosage: UNK
     Dates: start: 19961101
  5. SOMALGIN [Concomitant]
     Dosage: 1 TABLET (320 MG) IN THE LUNCH

REACTIONS (5)
  - CEREBROVASCULAR ACCIDENT [None]
  - CHEST PAIN [None]
  - INFARCTION [None]
  - NAUSEA [None]
  - STENT PLACEMENT [None]
